FAERS Safety Report 14600708 (Version 2)
Quarter: 2018Q3

REPORT INFORMATION
  Report Type: Spontaneous
  Country: US (occurrence: US)
  Receive Date: 20180305
  Receipt Date: 20180813
  Transmission Date: 20181010
  Serious: No
  Sender: FDA-Public Use
  Company Number: US-JNJFOC-20180206163

PATIENT
  Age: 57 Year
  Sex: Female

DRUGS (1)
  1. TREMFYA [Suspect]
     Active Substance: GUSELKUMAB
     Indication: PRODUCT USED FOR UNKNOWN INDICATION

REACTIONS (3)
  - Blister [Unknown]
  - Rash pustular [Unknown]
  - Drug ineffective [Unknown]
